FAERS Safety Report 9695649 (Version 1)
Quarter: 2013Q4

REPORT INFORMATION
  Report Type: Spontaneous
  Country: US (occurrence: None)
  Receive Date: 20131118
  Receipt Date: 20131118
  Transmission Date: 20140711
  Serious: No
  Sender: FDA-Public Use
  Company Number: None

PATIENT
  Age: 54 Year
  Sex: Male
  Weight: 70.31 kg

DRUGS (1)
  1. CEPHALEXIN [Suspect]
     Indication: ARTHRITIS INFECTIVE
     Dosage: 1 PILL PER 8 HOURS?THREE TIMES DAILY ?TAKEN BY MOUTH
     Route: 048
     Dates: start: 20131112, end: 20131113

REACTIONS (1)
  - Muscle spasms [None]
